FAERS Safety Report 9391725 (Version 2)
Quarter: 2014Q1

REPORT INFORMATION
  Report Type: Spontaneous
  Country: US (occurrence: US)
  Receive Date: 20130709
  Receipt Date: 20140210
  Transmission Date: 20141002
  Serious: Yes (Other)
  Sender: FDA-Public Use
  Company Number: US-INCYTE CORPORATION-2013IN001449

PATIENT
  Age: 75 Year
  Sex: Female

DRUGS (12)
  1. JAKAFI [Suspect]
     Indication: MYELOFIBROSIS
     Dosage: 15 MG DAILY DAYTIME AND 20 MG DAILY NIGHTTIME
     Route: 048
  2. JAKAFI [Suspect]
     Dosage: NOT SPECIFIED
     Route: 048
  3. IMODIUM [Concomitant]
  4. CENTRUM SILVER [Concomitant]
  5. CALTRATE 600 + D [Concomitant]
  6. NORVASC [Concomitant]
  7. SYNTHROID [Concomitant]
  8. DIAZEPAM [Concomitant]
  9. FERROUS SULFATE [Concomitant]
  10. TOPROL [Concomitant]
  11. PACERONE [Concomitant]
  12. COUMADIN [Concomitant]

REACTIONS (1)
  - Pneumonia [Recovered/Resolved]
